FAERS Safety Report 5066329-1 (Version None)
Quarter: 2006Q3

REPORT INFORMATION
  Report Type: 
  Country: None (occurrence: None)
  Receive Date: 20060801
  Receipt Date: 20060624
  Transmission Date: 20061208
  Serious: Yes (Hospitalization, Other)
  Sender: FDA-Public Use
  Company Number: US-AMGEN-STX184300

PATIENT
  Sex: Female

DRUGS (10)
  1. ENBREL [Suspect]
     Indication: RHEUMATOID ARTHRITIS
     Route: 058
     Dates: start: 19970101
  2. SULFASALAZINE [Concomitant]
  3. FOLIC ACID [Concomitant]
  4. PREDNISONE [Concomitant]
  5. ZANTAC [Concomitant]
  6. CHLORZOXAZONE [Concomitant]
  7. CELEBREX [Concomitant]
  8. OSCAL [Concomitant]
  9. FOSAMAX [Concomitant]
  10. MULTIVITAMIN [Concomitant]

REACTIONS (4)
  - BACK PAIN [None]
  - INFLUENZA LIKE ILLNESS [None]
  - KNEE ARTHROPLASTY [None]
  - MUSCLE TIGHTNESS [None]
